FAERS Safety Report 18688454 (Version 1)
Quarter: 2020Q4

REPORT INFORMATION
  Report Type: Report from Study
  Country: CO (occurrence: CO)
  Receive Date: 20201231
  Receipt Date: 20201231
  Transmission Date: 20210114
  Serious: Yes (Other)
  Sender: FDA-Public Use
  Company Number: NVSC2020CO263572

PATIENT
  Age: 39 Year
  Sex: Female
  Weight: 90 kg

DRUGS (3)
  1. PREDNISOLONE. [Concomitant]
     Active Substance: PREDNISOLONE
     Indication: PRODUCT USED FOR UNKNOWN INDICATION
     Route: 065
  2. REVOLADE [Suspect]
     Active Substance: ELTROMBOPAG
     Dosage: 75 MG, QD (3 OF 25 MG)
     Route: 048
  3. REVOLADE [Suspect]
     Active Substance: ELTROMBOPAG
     Indication: IMMUNE THROMBOCYTOPENIA
     Dosage: 50 MG, QD
     Route: 048
     Dates: start: 202001

REACTIONS (9)
  - Platelet count decreased [Unknown]
  - Blood uric acid decreased [Unknown]
  - Overweight [Unknown]
  - Alopecia [Unknown]
  - Haemorrhage [Unknown]
  - Headache [Unknown]
  - Fatigue [Unknown]
  - Menorrhagia [Unknown]
  - Nausea [Unknown]

NARRATIVE: CASE EVENT DATE: 20200913
